FAERS Safety Report 15117224 (Version 1)
Quarter: 2018Q3

REPORT INFORMATION
  Report Type: Spontaneous
  Country: DE (occurrence: DE)
  Receive Date: 20180706
  Receipt Date: 20180706
  Transmission Date: 20181010
  Serious: Yes (Hospitalization)
  Sender: FDA-Public Use
  Company Number: DE-MYLANLABS-2018M1047545

PATIENT
  Age: 44 Year
  Sex: Female
  Weight: 57 kg

DRUGS (10)
  1. AIRFLUSAL FORSPIRO [Concomitant]
     Active Substance: FLUTICASONE PROPIONATE\SALMETEROL XINAFOATE
     Indication: ALLERGIC RESPIRATORY DISEASE
     Dosage: 1 DOSAGE FORM TWICE DAILY
     Route: 055
     Dates: start: 2017
  2. PANTOPRAZOLE [Concomitant]
     Active Substance: PANTOPRAZOLE
     Indication: PROPHYLAXIS AGAINST GASTROINTESTINAL ULCER
     Dosage: 40 MG, QD
     Route: 048
     Dates: start: 20170120
  3. ANDROCUR [Suspect]
     Active Substance: CYPROTERONE ACETATE
     Indication: ALOPECIA
     Dosage: 2.5 MG, 1 IN 1 D
     Route: 048
     Dates: start: 201305
  4. ESTRADIOL. [Suspect]
     Active Substance: ESTRADIOL
     Indication: ALOPECIA
     Dosage: 1 PUFF DAILY, 1 IN 1 D
     Route: 062
     Dates: start: 201305
  5. DYMISTA [Concomitant]
     Active Substance: AZELASTINE HYDROCHLORIDE\FLUTICASONE PROPIONATE
     Indication: ALLERGIC RESPIRATORY DISEASE
     Dosage: UNK, UNKNOWN
  6. MOMETAHEXAL [Concomitant]
     Active Substance: MOMETASONE
     Indication: ALLERGIC RESPIRATORY DISEASE
     Dosage: 1 DOSAGE FORM ONCE DAILY
     Route: 055
     Dates: start: 201612
  7. CETIRIZINE DIHYDROCHLORIDE [Concomitant]
     Active Substance: CETIRIZINE HYDROCHLORIDE
     Indication: ALLERGIC RESPIRATORY DISEASE
     Dosage: 10 MG, QD
     Route: 048
     Dates: start: 2006
  8. ASPIRIN PROTECT [Suspect]
     Active Substance: ASPIRIN
     Indication: IMMUNOMODULATORY THERAPY
     Dosage: 300 MG, QD
     Route: 048
     Dates: start: 20170120
  9. MONTELUKAST SODIUM. [Concomitant]
     Active Substance: MONTELUKAST SODIUM
     Indication: ASTHMA
     Dosage: 10 MG, QD
     Route: 048
     Dates: start: 2006
  10. BUDES [Concomitant]
     Active Substance: BUDESONIDE
     Indication: ALLERGIC RESPIRATORY DISEASE
     Dosage: UNK
     Route: 055

REACTIONS (3)
  - Nasal polyps [Not Recovered/Not Resolved]
  - Aspirin-exacerbated respiratory disease [Unknown]
  - Product use in unapproved indication [Unknown]

NARRATIVE: CASE EVENT DATE: 2015
